FAERS Safety Report 9768373 (Version 5)
Quarter: 2014Q3

REPORT INFORMATION
  Report Type: Report from Study
  Country: HU (occurrence: HU)
  Receive Date: 20131217
  Receipt Date: 20140912
  Transmission Date: 20150326
  Serious: Yes (Hospitalization, Other)
  Sender: FDA-Public Use
  Company Number: HU-PFIZER INC-2013349060

PATIENT
  Age: 52 Year
  Sex: Female
  Weight: 91.2 kg

DRUGS (7)
  1. TRITACE HCT [Concomitant]
     Indication: HYPERTENSION
     Dosage: UNK
     Dates: start: 201001
  2. TOFACITINIB CITRATE [Suspect]
     Active Substance: TOFACITINIB CITRATE
     Indication: PSORIASIS
     Dosage: 10 MG, 2X/DAY
     Route: 048
     Dates: start: 20120229, end: 20131120
  3. MILGAMMA [Concomitant]
     Active Substance: VITAMIN B
     Indication: TYPE 2 DIABETES MELLITUS
     Dosage: UNK
     Dates: start: 20111019
  4. HUMALOG MIX [Concomitant]
     Active Substance: INSULIN LISPRO
     Indication: TYPE 2 DIABETES MELLITUS
     Dosage: UNK
     Dates: start: 20130815
  5. METOPROLOL [Concomitant]
     Active Substance: METOPROLOL
     Indication: GOITRE
     Dosage: UNK
     Dates: start: 20120223
  6. TORVALIPIN [Concomitant]
     Indication: HYPERCHOLESTEROLAEMIA
     Dosage: UNK
     Dates: start: 20120201
  7. TRITACE [Concomitant]
     Active Substance: RAMIPRIL
     Indication: HYPERTENSION
     Dosage: UNK
     Dates: start: 201001

REACTIONS (1)
  - Pancreatic carcinoma [Not Recovered/Not Resolved]

NARRATIVE: CASE EVENT DATE: 201302
